FAERS Safety Report 20743584 (Version 2)
Quarter: 2022Q3

REPORT INFORMATION
  Report Type: Spontaneous
  Country: TW (occurrence: TW)
  Receive Date: 20220425
  Receipt Date: 20220805
  Transmission Date: 20221026
  Serious: Yes (Other)
  Sender: FDA-Public Use
  Company Number: TW-SUN PHARMACEUTICAL INDUSTRIES LTD-2022RR-334028

PATIENT
  Age: 6 Week
  Sex: Female
  Weight: 2.515 kg

DRUGS (1)
  1. ASPIRIN [Suspect]
     Active Substance: ASPIRIN
     Indication: Thrombosis prophylaxis
     Dosage: 100 MILLIGRAM, DAILY, FROM 12 TO 34 WEEKS GA
     Route: 064

REACTIONS (3)
  - Neonatal seizure [Unknown]
  - Periventricular leukomalacia [Unknown]
  - Foetal exposure during pregnancy [Unknown]
